FAERS Safety Report 5820209-X (Version None)
Quarter: 2008Q3

REPORT INFORMATION
  Report Type: 
  Country: None (occurrence: None)
  Receive Date: 20080724
  Receipt Date: 20080723
  Transmission Date: 20090109
  Serious: Yes (Hospitalization)
  Sender: FDA-Public Use
  Company Number: PHEH1999US02268

PATIENT
  Sex: Male

DRUGS (17)
  1. RAD 666 RAD+ [Suspect]
     Dosage: 2 MG, BID
     Route: 048
     Dates: start: 19990513, end: 19990515
  2. NEORAL [Suspect]
     Route: 048
     Dates: start: 19990513, end: 19990516
  3. NYSTATIN [Concomitant]
  4. POLY-VI-SOL [Concomitant]
  5. UNASYN [Concomitant]
  6. BACTRIM [Concomitant]
  7. ACYCLOVIR [Concomitant]
  8. FLUCONAZOLE [Concomitant]
  9. SOLU-MEDROL [Concomitant]
  10. MORPHINE [Concomitant]
  11. MYLANTA [Concomitant]
  12. VERSED [Concomitant]
  13. POTASSIUM CHLORIDE [Concomitant]
  14. MAGNESIUM SULFATE [Concomitant]
  15. LASIX [Concomitant]
  16. LABETALOL HCL [Concomitant]
  17. HALDOL [Concomitant]

REACTIONS (6)
  - ANAEMIA [None]
  - HAEMATOMA [None]
  - HAEMOGLOBIN DECREASED [None]
  - HAEMOLYTIC URAEMIC SYNDROME [None]
  - RENAL FAILURE ACUTE [None]
  - RENAL TUBULAR NECROSIS [None]
